FAERS Safety Report 6775098-6 (Version None)
Quarter: 2010Q2

REPORT INFORMATION
  Report Type: 
  Country: None (occurrence: None)
  Receive Date: 20100617
  Receipt Date: 20100609
  Transmission Date: 20101027
  Serious: Yes (Hospitalization)
  Sender: FDA-Public Use
  Company Number: B0660945A

PATIENT
  Age: 22 Year
  Sex: Female

DRUGS (3)
  1. LAMICTAL [Suspect]
     Dosage: 75MG PER DAY
     Route: 048
     Dates: start: 20100427, end: 20100511
  2. FLUCTINE [Concomitant]
     Route: 065
  3. LEXOTANIL [Concomitant]
     Route: 065
     Dates: end: 20100511

REACTIONS (1)
  - TOXIC EPIDERMAL NECROLYSIS [None]
